FAERS Safety Report 21446124 (Version 1)
Quarter: 2022Q4

REPORT INFORMATION
  Report Type: Spontaneous
  Country: US (occurrence: None)
  Receive Date: 20221011
  Receipt Date: 20221011
  Transmission Date: 20230113
  Serious: Yes (Other)
  Sender: FDA-Public Use
  Company Number: None

PATIENT
  Age: 64 Year
  Sex: Female
  Weight: 87.75 kg

DRUGS (5)
  1. RISEDRONATE SODIUM [Suspect]
     Active Substance: RISEDRONATE SODIUM
     Indication: Osteopenia
     Dosage: OTHER QUANTITY : 1 TABLET(S);?OTHER FREQUENCY : ONCE A WEEK;?
     Route: 048
     Dates: start: 20220921, end: 20220928
  2. LIPITOR [Concomitant]
     Active Substance: ATORVASTATIN CALCIUM
  3. LOSARTAN [Concomitant]
     Active Substance: LOSARTAN
  4. VITAMINS [Concomitant]
     Active Substance: VITAMINS
  5. CALCIUM [Concomitant]
     Active Substance: CALCIUM

REACTIONS (4)
  - Neck pain [None]
  - Back pain [None]
  - Headache [None]
  - Adverse drug reaction [None]

NARRATIVE: CASE EVENT DATE: 20221009
